FAERS Safety Report 25802338 (Version 1)
Quarter: 2025Q3

REPORT INFORMATION
  Report Type: Spontaneous
  Country: GB (occurrence: GB)
  Receive Date: 20250915
  Receipt Date: 20250915
  Transmission Date: 20251021
  Serious: Yes (Other)
  Sender: SANDOZ
  Company Number: None

PATIENT
  Age: 78 Year
  Sex: Female
  Weight: 62 kg

DRUGS (28)
  1. GABAPENTIN [Suspect]
     Active Substance: GABAPENTIN
     Indication: Ill-defined disorder
     Route: 048
  2. Alginate [Concomitant]
     Indication: Ill-defined disorder
     Route: 065
     Dates: start: 20250826
  3. AMLODIPINE [Concomitant]
     Active Substance: AMLODIPINE BESYLATE
     Indication: Ill-defined disorder
     Dosage: TAKE ONE DAILY, QD
     Route: 065
     Dates: start: 20250212
  4. ATORVASTATIN [Concomitant]
     Active Substance: ATORVASTATIN
     Indication: Ill-defined disorder
     Dosage: TAKE ONE DAILY AT NIGHTS, QD
     Route: 065
     Dates: start: 20250721
  5. BACLOFEN [Concomitant]
     Active Substance: BACLOFEN
     Indication: Ill-defined disorder
     Dosage: TAKE 2.5MG/2.5ML THREE TIMES DAILY, TID
     Route: 065
     Dates: start: 20250730
  6. Biatain silicone [Concomitant]
     Indication: Ill-defined disorder
     Route: 065
     Dates: start: 20250804, end: 20250824
  7. Calci d [Concomitant]
     Indication: Ill-defined disorder
     Dosage: CHEW ONE TABLET ONCE DAILY, QD
     Route: 065
     Dates: start: 20250212
  8. CLOBETASOL PROPIONATE [Concomitant]
     Active Substance: CLOBETASOL PROPIONATE
     Indication: Ill-defined disorder
     Route: 065
     Dates: start: 20250212
  9. CLOPIDOGREL [Concomitant]
     Active Substance: CLOPIDOGREL BISULFATE
     Indication: Ill-defined disorder
     Dosage: TAKE ONE ONCE DAILY MORNING, QD
     Route: 065
     Dates: start: 20250721
  10. CLOTRIMAZOLE [Concomitant]
     Active Substance: CLOTRIMAZOLE
     Indication: Ill-defined disorder
     Route: 065
     Dates: start: 20250819, end: 20250826
  11. CODEINE PHOSPHATE [Concomitant]
     Active Substance: CODEINE PHOSPHATE
     Indication: Ill-defined disorder
     Route: 065
     Dates: start: 20250801
  12. CHOLECALCIFEROL [Concomitant]
     Active Substance: CHOLECALCIFEROL
     Indication: Ill-defined disorder
     Dosage: TAKE ONE ONCE DAILY MORNING, QD
     Route: 065
     Dates: start: 20250721
  13. CYANOCOBALAMIN [Concomitant]
     Active Substance: CYANOCOBALAMIN
     Indication: Ill-defined disorder
     Route: 065
     Dates: start: 20250721
  14. DALTEPARIN [Concomitant]
     Active Substance: DALTEPARIN
     Indication: Ill-defined disorder
     Route: 065
     Dates: start: 20250721
  15. DOCUSATE SODIUM [Concomitant]
     Active Substance: DOCUSATE SODIUM
     Indication: Ill-defined disorder
     Route: 065
     Dates: start: 20250807
  16. GABAPENTIN [Concomitant]
     Active Substance: GABAPENTIN
     Indication: Ill-defined disorder
     Dosage: TO BE TAKEN THREE TIMES DAILY, TID
     Route: 065
     Dates: start: 20250813
  17. HYDROCORTISONE [Concomitant]
     Active Substance: HYDROCORTISONE
     Indication: Ill-defined disorder
     Dosage: APPLY TWICE DAILY, BID
     Route: 065
     Dates: start: 20250212
  18. IBUPROFEN [Concomitant]
     Active Substance: IBUPROFEN
     Indication: Ill-defined disorder
     Dosage: APPLY 3 TIMES/DAY TO RIGHT ARM INCLUDING WRISTS..., TID
     Route: 065
     Dates: start: 20250801
  19. LACTULOSE [Concomitant]
     Active Substance: LACTULOSE
     Indication: Ill-defined disorder
     Dosage: 15ML TWICE DAILY, BID
     Route: 065
     Dates: start: 20250728
  20. LANSOPRAZOLE [Concomitant]
     Active Substance: LANSOPRAZOLE
     Indication: Ill-defined disorder
     Dosage: TAKE ONE ONCE DAILY MORNING, QD
     Route: 065
     Dates: start: 20250721
  21. Macrogol comp [Concomitant]
     Indication: Ill-defined disorder
     Dosage: TAKE ONE ONCE DAILY PRN, QD
     Route: 065
     Dates: start: 20250721, end: 20250728
  22. Micralax [Concomitant]
     Indication: Ill-defined disorder
     Route: 065
     Dates: start: 20250826
  23. ACETAMINOPHEN [Concomitant]
     Active Substance: ACETAMINOPHEN
     Indication: Ill-defined disorder
     Dosage: TAKE TWO 4 TIMES/DAY PRN, BID
     Route: 065
     Dates: start: 20250721
  24. PREGABALIN [Concomitant]
     Active Substance: PREGABALIN
     Indication: Ill-defined disorder
     Dosage: TAKE ONE TWICE DAILY, QD
     Route: 065
     Dates: start: 20250903
  25. POTASSIUM BICARBONATE\POTASSIUM CHLORIDE [Concomitant]
     Active Substance: POTASSIUM BICARBONATE\POTASSIUM CHLORIDE
     Indication: Ill-defined disorder
     Dosage: TAKE TWO TWICE DAILY FOR 3 DAYS , BID
     Route: 065
     Dates: start: 20250826, end: 20250829
  26. SENNA [Concomitant]
     Active Substance: SENNOSIDES
     Indication: Ill-defined disorder
     Route: 065
     Dates: start: 20250721
  27. SERTRALINE [Concomitant]
     Active Substance: SERTRALINE HYDROCHLORIDE
     Indication: Ill-defined disorder
     Dosage: TAKE ONE IN THE MORNING, QD
     Route: 065
     Dates: start: 20250212
  28. Zerobase [Concomitant]
     Indication: Ill-defined disorder
     Route: 065
     Dates: start: 20250808

REACTIONS (2)
  - Depressed level of consciousness [Unknown]
  - Somnolence [Recovered/Resolved]
